FAERS Safety Report 4904783-3 (Version None)
Quarter: 2006Q1

REPORT INFORMATION
  Report Type: 
  Country: None (occurrence: None)
  Receive Date: 20060208
  Receipt Date: 20051004
  Transmission Date: 20060701
  Serious: No
  Sender: FDA-Public Use
  Company Number: US-GLAXOSMITHKLINE-A0576974A

PATIENT
  Age: 37 Year
  Sex: Female

DRUGS (16)
  1. PAROXETINE HCL [Suspect]
     Dosage: 20MG TWICE PER DAY
     Route: 048
     Dates: start: 20050301
  2. KEPPRA [Concomitant]
     Route: 065
  3. TOPAMAX [Concomitant]
  4. KLONOPIN [Concomitant]
  5. IMODIUM [Concomitant]
  6. METFORMIN HYDROCHLORIDE [Concomitant]
  7. LIPITOR [Concomitant]
  8. LIBRAX [Concomitant]
  9. REQUIP [Concomitant]
  10. NORTRIPTYLINE HCL [Concomitant]
     Route: 065
  11. LORAZEPAM [Concomitant]
  12. IMPRAMINE HCL [Concomitant]
  13. HYDROCODONE BITARTRATE [Concomitant]
     Route: 065
  14. BACLOFEN [Concomitant]
     Route: 065
  15. COMPAZINE [Concomitant]
  16. PREVACID [Concomitant]

REACTIONS (1)
  - DRUG INEFFECTIVE [None]
